FAERS Safety Report 9121987 (Version 1)
Quarter: 2013Q1

REPORT INFORMATION
  Report Type: Spontaneous
  Country: PT (occurrence: PT)
  Receive Date: 20130114
  Receipt Date: 20130114
  Transmission Date: 20140127
  Serious: Yes (Disabling, Other)
  Sender: FDA-Public Use
  Company Number: PT-009507513-1301PRT004906

PATIENT
  Age: 60 Year
  Sex: Female

DRUGS (1)
  1. FOSAVANCE [Suspect]
     Indication: OSTEOPOROSIS
     Dosage: STRENGTH 70MG+5600IU
     Route: 048
     Dates: start: 2007

REACTIONS (2)
  - Femur fracture [Recovered/Resolved]
  - Fall [Unknown]
